FAERS Safety Report 10079475 (Version 2)
Quarter: 2014Q3

REPORT INFORMATION
  Report Type: Spontaneous
  Country: US (occurrence: US)
  Receive Date: 20140415
  Receipt Date: 20140825
  Transmission Date: 20150326
  Serious: No
  Sender: FDA-Public Use
  Company Number: US-009507513-1403USA005139

PATIENT
  Sex: Female
  Weight: 102.4 kg

DRUGS (8)
  1. ARMOUR THYROID [Concomitant]
     Active Substance: THYROID, PORCINE\THYROID, UNSPECIFIED
     Indication: PRODUCT USED FOR UNKNOWN INDICATION
     Dosage: UNK, UNKNOWN
  2. CLARITIN [Suspect]
     Active Substance: LORATADINE
     Indication: URTICARIA
  3. CYANOCOBALAMIN. [Concomitant]
     Active Substance: CYANOCOBALAMIN
     Indication: PRODUCT USED FOR UNKNOWN INDICATION
     Dosage: UNK, UNKNOWN
     Route: 060
  4. CLARITIN [Suspect]
     Active Substance: LORATADINE
     Indication: SINUS DISORDER
     Dosage: UNK, UNKNOWN
     Route: 048
  5. VITAMIN D [Concomitant]
     Active Substance: CHOLECALCIFEROL
     Indication: PRODUCT USED FOR UNKNOWN INDICATION
     Dosage: UNK, UNKNOWN
  6. BYSTOLIC [Concomitant]
     Active Substance: NEBIVOLOL HYDROCHLORIDE
     Indication: BLOOD PRESSURE
     Dosage: UNK, UNKNOWN
  7. ASPIRIN. [Concomitant]
     Active Substance: ASPIRIN
     Indication: PRODUCT USED FOR UNKNOWN INDICATION
     Dosage: UNK, UNKNOWN
  8. CLARITIN [Suspect]
     Active Substance: LORATADINE
     Indication: RASH

REACTIONS (3)
  - Off label use [Unknown]
  - Lacrimation increased [Unknown]
  - Unevaluable event [Unknown]
